FAERS Safety Report 9000615 (Version 12)
Quarter: 2013Q3

REPORT INFORMATION
  Report Type: Spontaneous
  Country: US (occurrence: US)
  Receive Date: 20130107
  Receipt Date: 20130906
  Transmission Date: 20140515
  Serious: Yes (Hospitalization, Other)
  Sender: FDA-Public Use
  Company Number: US-PFIZER INC-2013003096

PATIENT
  Age: 68 Year
  Sex: Male
  Weight: 72.56 kg

DRUGS (7)
  1. SUTENT [Suspect]
     Indication: METASTATIC RENAL CELL CARCINOMA
     Dosage: 25 MG, CYCLIC (DAILY, FOR 5 WEEKS FOLLOWED BY WEEK 6 OFF)
     Route: 048
     Dates: start: 20121113, end: 20130110
  2. SUTENT [Suspect]
     Dosage: 25 MG, CYCLIC (DAILY, FOR 5 WEEKS FOLLOWED BY WEEK 6 OFF)
     Route: 048
     Dates: start: 20130117
  3. ALBUTEROL [Concomitant]
     Indication: CHRONIC OBSTRUCTIVE PULMONARY DISEASE
     Dosage: UNK, AS NEEDED
  4. ALEVE [Concomitant]
     Indication: ARTHRITIS
     Dosage: UNK
  5. NAPROSYN [Concomitant]
     Dosage: 200 MG, 1X/DAY (PRN)
  6. SILVADENE [Concomitant]
     Indication: WOUND
     Dosage: UNK
  7. CORTISONE [Concomitant]
     Dosage: 10 MG, UNK

REACTIONS (53)
  - Influenza like illness [Unknown]
  - Asthenia [Unknown]
  - Dehydration [Unknown]
  - Amnesia [Recovered/Resolved]
  - Weight decreased [Unknown]
  - Chronic obstructive pulmonary disease [Unknown]
  - Blood pressure increased [Unknown]
  - Loss of consciousness [Unknown]
  - Shock [Unknown]
  - Renal failure [Recovering/Resolving]
  - Blood creatinine increased [Recovered/Resolved]
  - Anaemia [Unknown]
  - Tonic clonic movements [Unknown]
  - Nausea [Recovered/Resolved]
  - Glossodynia [Not Recovered/Not Resolved]
  - Aphthous stomatitis [Recovered/Resolved]
  - Dysgeusia [Recovering/Resolving]
  - Blood pressure increased [Recovered/Resolved]
  - Decreased appetite [Recovered/Resolved]
  - Ataxia [Unknown]
  - Muscular weakness [Recovered/Resolved]
  - Diarrhoea [Not Recovered/Not Resolved]
  - Dizziness [Unknown]
  - Rash pruritic [Not Recovered/Not Resolved]
  - Rash erythematous [Not Recovered/Not Resolved]
  - Drug dose omission [Unknown]
  - Fatigue [Recovering/Resolving]
  - Balance disorder [Not Recovered/Not Resolved]
  - Back pain [Recovered/Resolved]
  - Intervertebral disc protrusion [Recovered/Resolved]
  - Blood cortisol decreased [Recovered/Resolved]
  - Red blood cell count decreased [Unknown]
  - Muscle twitching [Unknown]
  - Fall [Recovered/Resolved]
  - Muscle disorder [Unknown]
  - Tic [Not Recovered/Not Resolved]
  - Anxiety [Unknown]
  - Mutism [Unknown]
  - Decreased appetite [Recovering/Resolving]
  - Muscular weakness [Unknown]
  - Systolic hypertension [Unknown]
  - Rash [Recovered/Resolved]
  - Ageusia [Recovered/Resolved]
  - Glossitis [Recovered/Resolved]
  - Radicular pain [Recovering/Resolving]
  - Impaired healing [Not Recovered/Not Resolved]
  - Tremor [Unknown]
  - Aphasia [Unknown]
  - Weight decreased [Unknown]
  - Tongue ulceration [Unknown]
  - Dry skin [Unknown]
  - Disease progression [Unknown]
  - Renal cancer metastatic [Unknown]
